FAERS Safety Report 21933623 (Version 1)
Quarter: 2023Q1

REPORT INFORMATION
  Report Type: Report from Study
  Country: GB (occurrence: GB)
  Receive Date: 20230201
  Receipt Date: 20230201
  Transmission Date: 20230417
  Serious: Yes (Hospitalization)
  Sender: FDA-Public Use
  Company Number: GB-ABBVIE-4289479

PATIENT
  Age: 61 Year
  Sex: Female

DRUGS (1)
  1. SKYRIZI [Suspect]
     Active Substance: RISANKIZUMAB-RZAA
     Indication: Psoriasis
     Route: 058

REACTIONS (7)
  - Hypertension [Unknown]
  - Device use error [Unknown]
  - Pruritus [Unknown]
  - Cardiac disorder [Unknown]
  - Skin disorder [Unknown]
  - Diabetes mellitus [Unknown]
  - Rash papular [Unknown]

NARRATIVE: CASE EVENT DATE: 20220101
